FAERS Safety Report 24784724 (Version 2)
Quarter: 2025Q1

REPORT INFORMATION
  Report Type: Report from Study
  Country: US (occurrence: US)
  Receive Date: 20241228
  Receipt Date: 20250113
  Transmission Date: 20250409
  Serious: Yes (Hospitalization)
  Sender: ROCHE
  Company Number: US-ROCHE-10000166116

PATIENT
  Age: 41 Year
  Sex: Male
  Weight: 95.25 kg

DRUGS (1)
  1. OCREVUS [Suspect]
     Active Substance: OCRELIZUMAB
     Indication: Relapsing multiple sclerosis
     Dosage: DATE OF TREATMENT: 20/SEP/2019, 07/MAY/2024.
     Route: 042
     Dates: start: 2017

REACTIONS (3)
  - Meningitis [Recovered/Resolved]
  - Vertigo [Recovered/Resolved]
  - B-lymphocyte count decreased [Unknown]

NARRATIVE: CASE EVENT DATE: 20240909
